FAERS Safety Report 15107538 (Version 1)
Quarter: 2018Q3

REPORT INFORMATION
  Report Type: Spontaneous
  Country: US (occurrence: US)
  Receive Date: 20180704
  Receipt Date: 20180704
  Transmission Date: 20181010
  Serious: No
  Sender: FDA-Public Use
  Company Number: US-ANTARES PHARMA, INC.-2018-SPO-SU-0466

PATIENT
  Sex: Female

DRUGS (1)
  1. SUMATRIPTAN. [Suspect]
     Active Substance: SUMATRIPTAN
     Indication: MIGRAINE
     Dosage: 6 MG/0.4ML, PRN
     Route: 058

REACTIONS (6)
  - Pain [Unknown]
  - Needle issue [Unknown]
  - Injection site pain [Unknown]
  - Device deployment issue [Unknown]
  - Device issue [Unknown]
  - Injection [Unknown]
